FAERS Safety Report 12552359 (Version 1)
Quarter: 2016Q3

REPORT INFORMATION
  Report Type: Spontaneous
  Country: US (occurrence: None)
  Receive Date: 20160712
  Receipt Date: 20160712
  Transmission Date: 20161109
  Serious: No
  Sender: FDA-Public Use
  Company Number: None

PATIENT
  Sex: Female

DRUGS (1)
  1. SENSIPAR [Suspect]
     Active Substance: CINACALCET HYDROCHLORIDE
     Indication: RENAL DISORDER
     Dosage: 30 MG ONCE DAILY FOR 1 WEEK BY MOUTH
     Route: 048
     Dates: start: 20160423

REACTIONS (4)
  - Decreased appetite [None]
  - Therapy cessation [None]
  - Weight decreased [None]
  - Confusional state [None]
